FAERS Safety Report 8799514 (Version 1)
Quarter: 2012Q4

REPORT INFORMATION
  Report Type: 
  Country: US (occurrence: US)
  Receive Date: 20120919
  Receipt Date: 20120919
  Transmission Date: 20130627
  Serious: No
  Sender: FDA-Public Use
  Company Number: US-PFIZER INC-2012228110

PATIENT
  Sex: Female

DRUGS (1)
  1. NITROSTAT [Suspect]
     Dosage: UNK

REACTIONS (2)
  - Incorrect storage of drug [Unknown]
  - Drug effect incomplete [Unknown]
